FAERS Safety Report 20616283 (Version 1)
Quarter: 2022Q1

REPORT INFORMATION
  Report Type: Spontaneous
  Country: US (occurrence: None)
  Receive Date: 20220319
  Receipt Date: 20220319
  Transmission Date: 20220423
  Serious: Yes (Hospitalization)
  Sender: FDA-Public Use
  Company Number: None

PATIENT
  Age: 67 Year
  Sex: Female
  Weight: 70.5 kg

DRUGS (2)
  1. AZACITIDINE [Suspect]
     Active Substance: AZACITIDINE
     Dates: end: 20220224
  2. VENETOCLAX [Suspect]
     Active Substance: VENETOCLAX
     Dates: end: 20220316

REACTIONS (11)
  - Colitis [None]
  - Pyrexia [None]
  - Diarrhoea [None]
  - Cough [None]
  - Neutropenic colitis [None]
  - Mouth ulceration [None]
  - Febrile neutropenia [None]
  - Chills [None]
  - Pancytopenia [None]
  - White blood cells urine positive [None]
  - Bacterial test positive [None]

NARRATIVE: CASE EVENT DATE: 20220223
